FAERS Safety Report 4383356-8 (Version None)
Quarter: 2004Q2

REPORT INFORMATION
  Report Type: 
  Country: None (occurrence: None)
  Receive Date: 20040618
  Receipt Date: 20040604
  Transmission Date: 20050107
  Serious: Yes (Hospitalization)
  Sender: FDA-Public Use
  Company Number: 2004218098GB

PATIENT
  Age: 57 Year
  Sex: Male

DRUGS (3)
  1. CELEBREX [Suspect]
     Indication: ARTHRALGIA
     Dosage: 200 MG, QD, ORAL
     Route: 048
  2. PREDNISOLONE [Concomitant]
  3. IBUPROFEN [Concomitant]

REACTIONS (1)
  - VASCULITIC RASH [None]
